FAERS Safety Report 8244687-4 (Version None)
Quarter: 2012Q1

REPORT INFORMATION
  Report Type: 
  Country: None (occurrence: None)
  Receive Date: 20120329
  Receipt Date: 20120125
  Transmission Date: 20120608
  Serious: No
  Sender: FDA-Public Use
  Company Number: US-MYLANLABS-2012S1002096

PATIENT
  Age: 32 Year
  Sex: Female
  Weight: 83.01 kg

DRUGS (2)
  1. ORAL CONTRACEPTIVE NOS [Concomitant]
     Indication: CONTRACEPTION
  2. FENTANYL-100 [Suspect]
     Indication: PAIN
     Dosage: CHANGES Q. 48 HOURS.
     Route: 062

REACTIONS (3)
  - DRUG WITHDRAWAL SYNDROME [None]
  - DRUG EFFECT DECREASED [None]
  - PAIN [None]
